FAERS Safety Report 12751770 (Version 2)
Quarter: 2017Q1

REPORT INFORMATION
  Report Type: Spontaneous
  Country: DE (occurrence: DE)
  Receive Date: 20160915
  Receipt Date: 20170206
  Transmission Date: 20170428
  Serious: Yes (Hospitalization)
  Sender: FDA-Public Use
  Company Number: DE-JAZZ-2016-DE-003257

PATIENT
  Age: 6 Year

DRUGS (2)
  1. EPRATUZUMAB [Concomitant]
     Active Substance: EPRATUZUMAB
     Indication: ACUTE LYMPHOCYTIC LEUKAEMIA RECURRENT
     Dosage: 288 MG, ( 360 MG/M2 )
     Route: 042
     Dates: start: 20160217, end: 20160217
  2. ERWINASE [Suspect]
     Active Substance: ASPARAGINASE ERWINIA CHRYSANTHEMI
     Indication: ACUTE LYMPHOCYTIC LEUKAEMIA RECURRENT
     Dosage: 16000 U, CONCENTRATION OF 20,000 U
     Route: 042
     Dates: start: 20160217, end: 20160218

REACTIONS (1)
  - Hypersensitivity [Recovered/Resolved]

NARRATIVE: CASE EVENT DATE: 20160217
